FAERS Safety Report 17419144 (Version 1)
Quarter: 2020Q1

REPORT INFORMATION
  Report Type: Spontaneous
  Country: US (occurrence: US)
  Receive Date: 20200214
  Receipt Date: 20200214
  Transmission Date: 20200409
  Serious: Yes (Life-Threatening, Hospitalization)
  Sender: FDA-Public Use
  Company Number: None

PATIENT
  Age: 82 Year
  Sex: Male
  Weight: 73 kg

DRUGS (14)
  1. ASPIRIN. [Suspect]
     Active Substance: ASPIRIN
     Indication: CORONARY ARTERY DISEASE
     Route: 048
  2. LISINOPRIL 2.5 MG [Concomitant]
  3. ACETAMINOPHEN CR 650 MG [Concomitant]
  4. METOPROLOL 50 MG [Concomitant]
     Active Substance: METOPROLOL
  5. SITAGLIPTIN 50 MG [Concomitant]
  6. FINASTERIDE 5 MG [Concomitant]
     Active Substance: FINASTERIDE
  7. METFORMIN [Concomitant]
     Active Substance: METFORMIN HYDROCHLORIDE
  8. AMIODARONE 100 MG [Concomitant]
  9. CALCIUM CARBONATE (ANTACID) [Concomitant]
     Active Substance: CALCIUM CARBONATE
  10. GLIPIZIDE 10 MG [Concomitant]
     Active Substance: GLIPIZIDE
  11. LATANOPROST 0.005% [Concomitant]
     Active Substance: LATANOPROST
  12. SIMVASTATIN 20 MG [Concomitant]
     Active Substance: SIMVASTATIN
  13. VICODIN [Concomitant]
     Active Substance: ACETAMINOPHEN\HYDROCODONE BITARTRATE
  14. APIXABAN [Suspect]
     Active Substance: APIXABAN
     Indication: DEEP VEIN THROMBOSIS
     Route: 048
     Dates: start: 20190716, end: 20190721

REACTIONS (2)
  - Haemorrhage [None]
  - Haemoglobin decreased [None]

NARRATIVE: CASE EVENT DATE: 20190721
